FAERS Safety Report 25555733 (Version 1)
Quarter: 2025Q3

REPORT INFORMATION
  Report Type: Spontaneous
  Country: EU (occurrence: EU)
  Receive Date: 20250715
  Receipt Date: 20250715
  Transmission Date: 20251021
  Serious: Yes (Hospitalization)
  Sender: PFIZER
  Company Number: None

PATIENT
  Age: 77 Year
  Sex: Male
  Weight: 90 kg

DRUGS (2)
  1. PALBOCICLIB [Suspect]
     Active Substance: PALBOCICLIB
     Indication: Breast cancer stage IV
     Route: 048
     Dates: start: 20250321
  2. ASPIRIN [Concomitant]
     Active Substance: ASPIRIN
     Indication: Retinal artery thrombosis
     Dosage: 100 MG, DAILY
     Route: 048
     Dates: start: 20201015, end: 20250503

REACTIONS (2)
  - Iron deficiency anaemia [Recovered/Resolved]
  - Pneumonia [Unknown]

NARRATIVE: CASE EVENT DATE: 20250503
